FAERS Safety Report 8136877-6 (Version None)
Quarter: 2012Q1

REPORT INFORMATION
  Report Type: 
  Country: None (occurrence: None)
  Receive Date: 20120214
  Receipt Date: 20120208
  Transmission Date: 20120608
  Serious: Yes (Hospitalization)
  Sender: FDA-Public Use
  Company Number: US-CELGENEUS-163-50794-11123717

PATIENT
  Age: 56 Year
  Sex: Female
  Weight: 60.881 kg

DRUGS (37)
  1. LEVOFLOXACIN [Concomitant]
     Dosage: 750 MILLIGRAM
     Route: 048
  2. ACETAMINOPHEN [Concomitant]
     Route: 048
  3. ALUMINUM-MAGNESIUM-SIMETHICONE [Concomitant]
     Route: 048
  4. MAGNESIUM HYDROXIDE TAB [Concomitant]
     Dosage: 30 MILLILITER
     Route: 048
  5. DOCUSATE [Concomitant]
     Dosage: 200 MILLIGRAM
     Route: 048
  6. VITAMIN D [Concomitant]
     Dosage: 50000 UNITS
     Route: 048
  7. RIBOFLAVIN [Concomitant]
  8. ZOLINZA [Suspect]
     Dosage: 400 MILLIGRAM
     Route: 048
     Dates: start: 20111107, end: 20111113
  9. CHLORHEXIDINE GLUCONATE [Concomitant]
     Dosage: 2 PERCENT
     Route: 061
  10. HYPROMELLOSE [Concomitant]
     Dosage: 1 DROPS
     Route: 047
  11. LORAZEPAM [Concomitant]
     Dosage: 0.5-1MG
  12. OXYCODONE HCL [Concomitant]
     Dosage: 5 MILLIGRAM
     Route: 065
  13. MAGNESIUM CITRATE [Concomitant]
     Indication: CONSTIPATION
     Route: 048
  14. EUCERIN [Concomitant]
     Indication: DRY SKIN
     Route: 061
  15. MIRALAX [Concomitant]
     Route: 048
  16. MORPHINE [Concomitant]
     Dosage: 1.5 MILLIGRAM
     Route: 041
  17. VIDAZA [Suspect]
     Dosage: 75 MILLIGRAM/SQ. METER
     Route: 065
     Dates: start: 20111107, end: 20111113
  18. MYLOTARG [Suspect]
     Dosage: 3 MILLIGRAM/SQ. METER
     Route: 041
     Dates: start: 20111110, end: 20111110
  19. ACYCLOVIR [Concomitant]
     Dosage: 800 MILLIGRAM
     Route: 048
  20. ALBUTEROL [Concomitant]
     Dosage: 2.5 MILLIGRAM
     Route: 065
  21. SENNA [Concomitant]
     Indication: CONSTIPATION
     Route: 048
  22. OMEPRAZOLE [Concomitant]
     Dosage: 20 MILLIGRAM
     Route: 065
  23. BENADRYL [Concomitant]
     Dosage: 25 MILLIGRAM
     Route: 048
  24. DALTEPARIN SODIUM [Concomitant]
     Dosage: 2.5 MILLIGRAM
     Route: 065
  25. LOPERAMIDE HCL [Concomitant]
     Dosage: 2 MILLIGRAM
     Route: 065
  26. MULTI-VITAMINS [Concomitant]
     Route: 048
  27. ASCORBIC ACID [Concomitant]
     Dosage: 500 MILLIGRAM
     Route: 048
  28. FLUCONAZOLE [Concomitant]
     Route: 048
  29. IPRATROPIUM BROMIDE [Concomitant]
     Dosage: .5 MILLIGRAM
     Route: 065
  30. LANOLIN [Concomitant]
     Indication: DRY SKIN
     Route: 065
  31. METOCLOPRAMIDE [Concomitant]
     Dosage: 37.5 MILLIGRAM
     Route: 048
  32. ZOFRAN [Concomitant]
     Route: 048
  33. BENADRYL [Concomitant]
     Indication: NAUSEA
  34. PREDNISONE TAB [Concomitant]
     Dosage: 20 MILLIGRAM
     Route: 048
  35. LORAZEPAM [Concomitant]
     Dosage: .5 MILLIGRAM
     Route: 065
  36. METOCLOPRAMIDE [Concomitant]
     Dosage: 10 MILLIGRAM
     Route: 041
  37. PROCHLORPERAZINE [Concomitant]
     Dosage: 10 MILLIGRAM
     Route: 048

REACTIONS (4)
  - PYREXIA [None]
  - PNEUMOTHORAX [None]
  - PNEUMONITIS [None]
  - SUPRAVENTRICULAR TACHYCARDIA [None]
